FAERS Safety Report 6237611-7 (Version None)
Quarter: 2009Q2

REPORT INFORMATION
  Report Type: 
  Country: None (occurrence: None)
  Receive Date: 20090619
  Receipt Date: 20090612
  Transmission Date: 20091009
  Serious: Yes (Other)
  Sender: FDA-Public Use
  Company Number: JP-MERCK-0902USA03879

PATIENT
  Age: 15 Year
  Sex: Male

DRUGS (10)
  1. SINGULAIR [Suspect]
     Indication: ASTHMA
     Route: 048
     Dates: start: 20080726, end: 20081001
  2. SINGULAIR [Suspect]
     Route: 048
     Dates: start: 20090124
  3. SINGULAIR [Suspect]
     Indication: RHINITIS ALLERGIC
     Route: 048
     Dates: start: 20080726, end: 20081001
  4. SINGULAIR [Suspect]
     Route: 048
     Dates: start: 20090124
  5. ZESULAN [Suspect]
     Indication: RHINITIS ALLERGIC
     Route: 048
     Dates: start: 20081003
  6. URALYT [Concomitant]
     Route: 048
  7. URALYT [Concomitant]
     Route: 048
     Dates: end: 20080801
  8. URALYT [Concomitant]
     Route: 048
     Dates: start: 20080801
  9. URINORM [Concomitant]
     Route: 048
  10. SODIUM BICARBONATE [Concomitant]
     Route: 048

REACTIONS (1)
  - HYPERKALAEMIA [None]
